FAERS Safety Report 24541039 (Version 1)
Quarter: 2024Q4

REPORT INFORMATION
  Report Type: Spontaneous
  Country: US (occurrence: US)
  Receive Date: 20241023
  Receipt Date: 20241023
  Transmission Date: 20250114
  Serious: No
  Sender: ROCHE
  Company Number: US-ROCHE-10000112503

PATIENT
  Age: 39 Year
  Sex: Male

DRUGS (2)
  1. HEMLIBRA [Suspect]
     Active Substance: EMICIZUMAB-KXWH
     Indication: Factor VIII deficiency
     Dosage: STRENGTH 105 MG/.7 ML AND STRENGTH 150 MG / ML
     Route: 058
     Dates: start: 201208
  2. ELOCTATE [Concomitant]
     Active Substance: EFMOROCTOCOG ALFA
     Indication: Factor VIII deficiency

REACTIONS (1)
  - Back pain [Recovered/Resolved]

NARRATIVE: CASE EVENT DATE: 20240923
